FAERS Safety Report 18362547 (Version 1)
Quarter: 2020Q4

REPORT INFORMATION
  Report Type: Other
  Country: DE (occurrence: DE)
  Receive Date: 20201009
  Receipt Date: 20201009
  Transmission Date: 20210114
  Serious: Yes (Hospitalization, Other)
  Sender: FDA-Public Use
  Company Number: DE-LUPIN PHARMACEUTICALS INC.-2020-06862

PATIENT
  Age: 16 Year
  Sex: Male
  Weight: 45 kg

DRUGS (6)
  1. TOPIRAMAT [Suspect]
     Active Substance: TOPIRAMATE
     Dosage: 150 MILLIGRAM, BID (INCREASED DOSE)
     Route: 048
  2. FRISIUM [Suspect]
     Active Substance: CLOBAZAM
     Indication: PARTIAL SEIZURES
     Dosage: UNK (2 DOSAGE FORMS EVERY DAYS 2 SEPARATED DOSES)
     Route: 048
  3. BUCCOLAM [Suspect]
     Active Substance: MIDAZOLAM HYDROCHLORIDE
     Indication: EPILEPSY
     Dosage: 1 DOSAGE FORM
     Route: 002
  4. LAMOTRIGINE TABLETS 200 MG [Suspect]
     Active Substance: LAMOTRIGINE
     Indication: PARTIAL SEIZURES
     Dosage: UNK (2 DOSAGE FORM EVERY DAYS 2 SEPARATED DOSES)
     Route: 048
  5. INOVELON [Suspect]
     Active Substance: RUFINAMIDE
     Indication: PARTIAL SEIZURES
     Dosage: UNK (2 DOSAGE FORMS EVERY DAYS 2 SEPARATED DOSES)
     Route: 048
  6. TOPIRAMAT [Suspect]
     Active Substance: TOPIRAMATE
     Indication: PARTIAL SEIZURES
     Dosage: UNK (2 DOSAGE FORM EVERY DAYS 2 SEPARATED DOSES)
     Route: 048

REACTIONS (2)
  - Status epilepticus [Unknown]
  - Epilepsy [Unknown]

NARRATIVE: CASE EVENT DATE: 20190623
